FAERS Safety Report 4551152-4 (Version None)
Quarter: 2005Q1

REPORT INFORMATION
  Report Type: 
  Country: None (occurrence: None)
  Receive Date: 20050111
  Receipt Date: 20050111
  Transmission Date: 20050727
  Serious: Yes (Hospitalization)
  Sender: FDA-Public Use
  Company Number: None

PATIENT
  Age: 78 Year
  Sex: Male
  Weight: 61 kg

DRUGS (6)
  1. PHENYTOIN [Suspect]
     Indication: CONVULSION
     Dosage: 200MG,100MGQ12, ORAL
     Route: 048
     Dates: start: 20041111, end: 20041124
  2. ... [Concomitant]
  3. CEFEPIME HCL [Concomitant]
  4. LINEZOLID [Concomitant]
  5. VANCOMYCIN [Concomitant]
  6. CETRIAXONE SODIUM [Concomitant]

REACTIONS (1)
  - RASH [None]
